FAERS Safety Report 4658436-X (Version None)
Quarter: 2005Q2

REPORT INFORMATION
  Report Type: 
  Country: None (occurrence: None)
  Receive Date: 20050510
  Receipt Date: 20050510
  Transmission Date: 20051028
  Serious: No
  Sender: FDA-Public Use
  Company Number: None

PATIENT
  Age: 51 Year
  Sex: Female
  Weight: 72.5755 kg

DRUGS (2)
  1. ZOSYN [Suspect]
     Indication: OSTEOMYELITIS
     Dosage: 4.5 GRAMS Q 8HR IV
     Route: 042
     Dates: start: 20050318, end: 20050405
  2. ZOSYN [Suspect]

REACTIONS (4)
  - BODY TEMPERATURE INCREASED [None]
  - CHEST DISCOMFORT [None]
  - GENERALISED ERYTHEMA [None]
  - PYREXIA [None]
